FAERS Safety Report 8365539-5 (Version None)
Quarter: 2012Q2

REPORT INFORMATION
  Report Type: 
  Country: None (occurrence: None)
  Receive Date: 20120516
  Receipt Date: 20120504
  Transmission Date: 20120825
  Serious: Yes (Other)
  Sender: FDA-Public Use
  Company Number: US-ELI_LILLY_AND_COMPANY-US201205002907

PATIENT
  Age: 39 Year
  Sex: Male

DRUGS (2)
  1. CYMBALTA [Suspect]
     Indication: BACK PAIN
     Dosage: 30 MG, QD
     Dates: start: 20120502
  2. TRAMADOL HYDROCHLORIDE [Concomitant]
     Dosage: 50 MG, UNK

REACTIONS (13)
  - HOT FLUSH [None]
  - FEELING HOT [None]
  - LOGORRHOEA [None]
  - DRY MOUTH [None]
  - FALL [None]
  - LOSS OF CONSCIOUSNESS [None]
  - FLUSHING [None]
  - HYPERHIDROSIS [None]
  - DECREASED APPETITE [None]
  - INSOMNIA [None]
  - PSYCHOMOTOR HYPERACTIVITY [None]
  - MANIA [None]
  - BALANCE DISORDER [None]
